FAERS Safety Report 15053194 (Version 7)
Quarter: 2018Q3

REPORT INFORMATION
  Report Type: Spontaneous
  Country: US (occurrence: US)
  Receive Date: 20180622
  Receipt Date: 20180918
  Transmission Date: 20181010
  Serious: Yes (Other)
  Sender: FDA-Public Use
  Company Number: US-CELGENEUS-USA-20180605765

PATIENT
  Sex: Female

DRUGS (1)
  1. OTEZLA [Suspect]
     Active Substance: APREMILAST
     Indication: PSORIASIS
     Dosage: 60 MILLIGRAM
     Route: 048
     Dates: start: 201805

REACTIONS (5)
  - Skin exfoliation [Unknown]
  - Nausea [Unknown]
  - Psoriasis [Unknown]
  - Hepatic cirrhosis [Unknown]
  - Vomiting [Unknown]

NARRATIVE: CASE EVENT DATE: 2018
